FAERS Safety Report 7112296-6 (Version None)
Quarter: 2010Q4

REPORT INFORMATION
  Report Type: 
  Country: None (occurrence: None)
  Receive Date: 20101119
  Receipt Date: 20100611
  Transmission Date: 20110411
  Serious: No
  Sender: FDA-Public Use
  Company Number: A0864561A

PATIENT
  Sex: Male

DRUGS (4)
  1. AVODART [Suspect]
     Indication: PROSTATE CANCER
     Dosage: 5MG PER DAY
     Route: 048
     Dates: start: 20100511
  2. SIMVASTATIN [Concomitant]
  3. CARTIA XT [Concomitant]
  4. VITAMINS [Concomitant]

REACTIONS (1)
  - DRUG INEFFECTIVE [None]
